FAERS Safety Report 20574223 (Version 1)
Quarter: 2022Q1

REPORT INFORMATION
  Report Type: Spontaneous
  Country: US (occurrence: US)
  Receive Date: 20220309
  Receipt Date: 20220309
  Transmission Date: 20220423
  Serious: Yes (Death, Hospitalization)
  Sender: FDA-Public Use
  Company Number: US-R-PHARM US LLC-2022RPM00001

PATIENT
  Sex: Female

DRUGS (2)
  1. IXEMPRA [Suspect]
     Active Substance: IXABEPILONE
     Indication: Breast cancer female
     Dosage: 45 MG
     Dates: end: 20211222
  2. IXEMPRA [Suspect]
     Active Substance: IXABEPILONE
     Indication: Invasive ductal breast carcinoma

REACTIONS (2)
  - Death [Fatal]
  - Asthenia [Not Recovered/Not Resolved]

NARRATIVE: CASE EVENT DATE: 20220101
